FAERS Safety Report 14673479 (Version 1)
Quarter: 2018Q1

REPORT INFORMATION
  Report Type: Spontaneous
  Country: JP (occurrence: JP)
  Receive Date: 20180323
  Receipt Date: 20180323
  Transmission Date: 20180509
  Serious: Yes (Hospitalization, Other)
  Sender: FDA-Public Use
  Company Number: JP-MYLANLABS-2018M1019682

PATIENT
  Age: 8 Decade
  Sex: Male

DRUGS (1)
  1. METHOTREXATE. [Suspect]
     Active Substance: METHOTREXATE
     Indication: RHEUMATOID ARTHRITIS
     Route: 065

REACTIONS (5)
  - Gait disturbance [Recovered/Resolved]
  - Histiocytosis haematophagic [Recovered/Resolved]
  - Cerebral infarction [Recovered/Resolved]
  - Diffuse large B-cell lymphoma [Recovered/Resolved]
  - Cognitive disorder [Recovered/Resolved]
